FAERS Safety Report 25522075 (Version 4)
Quarter: 2025Q3

REPORT INFORMATION
  Report Type: Report from Study
  Country: US (occurrence: US)
  Receive Date: 20250707
  Receipt Date: 20250819
  Transmission Date: 20251021
  Serious: Yes (Death, Hospitalization, Other)
  Sender: ALEXION PHARMACEUTICALS
  Company Number: US-AstraZeneca-CH-00903656A

PATIENT
  Sex: Male

DRUGS (12)
  1. BUDESONIDE\FORMOTEROL\GLYCOPYRRONIUM [Suspect]
     Active Substance: BUDESONIDE\FORMOTEROL\GLYCOPYRRONIUM
     Route: 065
  2. ALBUTEROL [Concomitant]
     Active Substance: ALBUTEROL
  3. CARBIDOPA [Concomitant]
     Active Substance: CARBIDOPA
  4. ESCITALOPRAM [Concomitant]
     Active Substance: ESCITALOPRAM OXALATE
  5. FINASTERIDE [Concomitant]
     Active Substance: FINASTERIDE
  6. GABAPENTIN [Concomitant]
     Active Substance: GABAPENTIN
  7. IPRATROPIUM [Concomitant]
     Active Substance: IPRATROPIUM
  8. MIRTAZAPINE [Concomitant]
     Active Substance: MIRTAZAPINE
  9. OLANZAPINE [Concomitant]
     Active Substance: OLANZAPINE
  10. ONDANSETRON [Concomitant]
     Active Substance: ONDANSETRON
  11. OXYCODONE [Concomitant]
     Active Substance: OXYCODONE
  12. TAMSULOSIN [Concomitant]
     Active Substance: TAMSULOSIN

REACTIONS (33)
  - Acute kidney injury [Fatal]
  - Constipation [Unknown]
  - Urinary retention [Unknown]
  - Haematuria [Unknown]
  - Proteinuria [Unknown]
  - Pneumonia [Unknown]
  - Septic shock [Unknown]
  - Encephalopathy [Unknown]
  - Chest X-ray abnormal [Unknown]
  - Lung consolidation [Unknown]
  - Pulmonary mass [Unknown]
  - Respiratory distress [Unknown]
  - Pulmonary oedema [Unknown]
  - Metabolic acidosis [Unknown]
  - Respiratory acidosis [Unknown]
  - Inguinal hernia [Unknown]
  - Acute respiratory failure [Unknown]
  - Hypothyroidism [Unknown]
  - Anaemia [Unknown]
  - Aortic arteriosclerosis [Unknown]
  - Renal artery arteriosclerosis [Unknown]
  - Pain [Unknown]
  - Hypertension [Unknown]
  - Hyperlipidaemia [Unknown]
  - Lung opacity [Unknown]
  - Atelectasis [Unknown]
  - Emphysema [Unknown]
  - Pleural effusion [Unknown]
  - Cardiomegaly [Unknown]
  - Peripheral arterial occlusive disease [Unknown]
  - Lipomatosis [Unknown]
  - Affective disorder [Unknown]
  - Renal cyst [Unknown]
